FAERS Safety Report 17062658 (Version 1)
Quarter: 2019Q4

REPORT INFORMATION
  Report Type: Spontaneous
  Country: GB (occurrence: GB)
  Receive Date: 20191122
  Receipt Date: 20191122
  Transmission Date: 20200122
  Serious: Yes (Other)
  Sender: FDA-Public Use
  Company Number: GB-TEVA-2019-GB-1139587

PATIENT
  Age: 58 Year
  Sex: Male
  Weight: 82 kg

DRUGS (4)
  1. NITROFURANTOIN. [Suspect]
     Active Substance: NITROFURANTOIN
     Indication: URINARY TRACT INFECTION
     Dosage: 200 MG
     Route: 048
     Dates: start: 20180727, end: 20180728
  2. ETANERCEPT [Concomitant]
     Active Substance: ETANERCEPT
  3. FOLIC ACID. [Concomitant]
     Active Substance: FOLIC ACID
  4. METHOTREXATE. [Concomitant]
     Active Substance: METHOTREXATE

REACTIONS (7)
  - Feeling abnormal [Recovered/Resolved]
  - Heart rate increased [Recovered/Resolved]
  - Asthenia [Recovered/Resolved]
  - Decreased appetite [Recovered/Resolved]
  - Headache [Recovered/Resolved]
  - Cough [Recovered/Resolved]
  - Slow response to stimuli [Recovered/Resolved]

NARRATIVE: CASE EVENT DATE: 20180727
